FAERS Safety Report 4269809-1 (Version None)
Quarter: 2004Q1

REPORT INFORMATION
  Report Type: 
  Country: None (occurrence: None)
  Receive Date: 20040112
  Receipt Date: 20031229
  Transmission Date: 20041129
  Serious: Yes (Other)
  Sender: FDA-Public Use
  Company Number: NSADSS2003023951

PATIENT
  Age: 17 Year
  Sex: Female
  Weight: 54.8852 kg

DRUGS (5)
  1. ORTHO TRI-CYCLEN [Suspect]
     Indication: ACNE
     Dosage: 1 DOSE (S), 1 IN 1 DAY, ORAL
     Route: 048
     Dates: start: 20021023, end: 20030304
  2. ORTHO TRI-CYCLEN [Suspect]
     Indication: MENSTRUATION IRREGULAR
     Dosage: 1 DOSE (S), 1 IN 1 DAY, ORAL
     Route: 048
     Dates: start: 20021023, end: 20030304
  3. ACCUTANE [Suspect]
     Indication: ACNE CYSTIC
     Dosage: 40 MG, 1 IN 1 DAY, ORAL
     Route: 048
     Dates: start: 20030101, end: 20030304
  4. BACTRIM DS [Concomitant]
  5. PREDNISONE [Concomitant]

REACTIONS (3)
  - INFECTIOUS MONONUCLEOSIS [None]
  - PAPILLOEDEMA [None]
  - VISUAL FIELD DEFECT [None]
